FAERS Safety Report 9524379 (Version 1)
Quarter: 2013Q1

REPORT INFORMATION
  Report Type: Spontaneous
  Country: US (occurrence: None)
  Receive Date: 20130305
  Receipt Date: 20130305
  Transmission Date: 20140127
  Serious: Yes (Hospitalization, Other)
  Sender: FDA-Public Use
  Company Number: 163-21880-12033447

PATIENT
  Age: 67 Year
  Sex: Female
  Weight: 64.41 kg

DRUGS (3)
  1. REVLIMID (LENALIDOMIDE) (25 MILLIGRAM, CAPSULES) [Suspect]
     Indication: PLASMA CELL MYELOMA
     Dosage: 25 MG, 1 IN 1 D, PO
     Route: 048
     Dates: start: 20110111, end: 20110714
  2. DEXAMETHASONE (DEXAMETHASONE) (UNKNOWN)? [Concomitant]
  3. VELCADE [Concomitant]

REACTIONS (3)
  - Sinusitis bacterial [None]
  - Plasmacytoma [None]
  - Rash erythematous [None]
